FAERS Safety Report 5808330-3 (Version None)
Quarter: 2008Q3

REPORT INFORMATION
  Report Type: 
  Country: None (occurrence: None)
  Receive Date: 20080709
  Receipt Date: 20080624
  Transmission Date: 20090109
  Serious: Yes (Other)
  Sender: FDA-Public Use
  Company Number: B0527513A

PATIENT
  Age: 43 Year

DRUGS (3)
  1. LAMIVUDINE [Suspect]
     Indication: HIV INFECTION
     Dates: start: 20040401
  2. TENOFOVIR DISOPROXIL FUMARATE [Suspect]
     Indication: HIV INFECTION
     Dates: start: 20040401
  3. EFAVIRENZ [Suspect]
     Indication: HIV INFECTION
     Dates: start: 20040401

REACTIONS (7)
  - CSF PROTEIN INCREASED [None]
  - HYPOAESTHESIA [None]
  - IMMUNE RECONSTITUTION SYNDROME [None]
  - LEPROSY [None]
  - NEUROPATHY PERIPHERAL [None]
  - PIGMENTATION DISORDER [None]
  - SKIN ULCER [None]
